FAERS Safety Report 8278570-5 (Version None)
Quarter: 2012Q2

REPORT INFORMATION
  Report Type: 
  Country: None (occurrence: None)
  Receive Date: 20120412
  Receipt Date: 20110405
  Transmission Date: 20120825
  Serious: No
  Sender: FDA-Public Use
  Company Number: US-ASTRAZENECA-2011SE19486

PATIENT
  Age: 55 Year
  Sex: Female
  Weight: 52.2 kg

DRUGS (6)
  1. CYPROHEPTADINE HCL [Concomitant]
     Indication: DECREASED APPETITE
  2. PROZAC [Concomitant]
  3. NEXIUM [Suspect]
     Route: 048
     Dates: start: 20110401
  4. NEXIUM [Suspect]
     Indication: GASTROOESOPHAGEAL REFLUX DISEASE
     Route: 048
     Dates: start: 20010101
  5. NEXIUM [Suspect]
     Route: 048
     Dates: start: 20110401, end: 20110401
  6. KLONOPIN [Concomitant]

REACTIONS (8)
  - DYSGEUSIA [None]
  - BURNING SENSATION [None]
  - GASTROOESOPHAGEAL REFLUX DISEASE [None]
  - DRUG DOSE OMISSION [None]
  - WRONG DRUG ADMINISTERED [None]
  - CHOKING [None]
  - APHAGIA [None]
  - DYSPHAGIA [None]
